FAERS Safety Report 6444401-9 (Version None)
Quarter: 2009Q4

REPORT INFORMATION
  Report Type: 
  Country: None (occurrence: None)
  Receive Date: 20091118
  Receipt Date: 20091109
  Transmission Date: 20100525
  Serious: Yes (Other)
  Sender: FDA-Public Use
  Company Number: GB-TEVA-214916ISR

PATIENT

DRUGS (3)
  1. SODIUM CHLORIDE [Suspect]
     Route: 064
  2. FENTANYL-100 [Suspect]
     Route: 064
  3. BUPIVACAINE [Suspect]
     Route: 064

REACTIONS (1)
  - BRADYCARDIA FOETAL [None]
